FAERS Safety Report 9950260 (Version 1)
Quarter: 2014Q1

REPORT INFORMATION
  Report Type: Spontaneous
  Country: US (occurrence: US)
  Receive Date: 20140304
  Receipt Date: 20140304
  Transmission Date: 20141002
  Serious: No
  Sender: FDA-Public Use
  Company Number: US-ABBVIE-13P-163-1065799-00

PATIENT
  Sex: Female
  Weight: 136.2 kg

DRUGS (7)
  1. HUMIRA [Suspect]
     Indication: PSORIATIC ARTHROPATHY
     Dates: start: 201301
  2. ATENOLOL [Concomitant]
     Indication: HYPERTENSION
  3. TRIAMTERENE [Concomitant]
     Indication: DIURETIC THERAPY
  4. ANAFRANIL [Concomitant]
     Indication: ANXIETY
  5. ANAFRANIL [Concomitant]
     Indication: PANIC ATTACK
  6. POTASSIUM [Concomitant]
     Indication: MINERAL SUPPLEMENTATION
  7. LEVOTHYROXINE [Concomitant]
     Indication: HYPOTHYROIDISM

REACTIONS (1)
  - Injection site pain [Not Recovered/Not Resolved]
